FAERS Safety Report 23591397 (Version 1)
Quarter: 2024Q1

REPORT INFORMATION
  Report Type: Spontaneous
  Country: BR (occurrence: BR)
  Receive Date: 20240304
  Receipt Date: 20240304
  Transmission Date: 20240410
  Serious: Yes (Hospitalization)
  Sender: FDA-Public Use
  Company Number: BR-002147023-NVSC2024BR043814

PATIENT
  Sex: Male
  Weight: 88 kg

DRUGS (3)
  1. TASIGNA [Suspect]
     Active Substance: NILOTINIB
     Indication: Chronic myeloid leukaemia
     Dosage: 4 DOSAGE FORM, QD
     Route: 065
     Dates: start: 202203
  2. PURAN [Concomitant]
     Active Substance: LEVOTHYROXINE SODIUM
     Indication: Thyroid disorder
     Dosage: 1 DOSAGE FORM, QD (IN FASTING)
     Route: 065
  3. ALENIA [Concomitant]
     Indication: Asthma
     Dosage: UNK (1 PUFF PER DAY)
     Route: 065

REACTIONS (1)
  - Asthma [Unknown]
